FAERS Safety Report 17582096 (Version 1)
Quarter: 2020Q1

REPORT INFORMATION
  Report Type: Spontaneous
  Country: CN (occurrence: CN)
  Receive Date: 20200325
  Receipt Date: 20200325
  Transmission Date: 20200409
  Serious: Yes (Hospitalization)
  Sender: FDA-Public Use
  Company Number: CN-PFIZER INC-2020126397

PATIENT
  Age: 52 Year
  Sex: Female
  Weight: 69 kg

DRUGS (2)
  1. PHARMORUBICIN [Suspect]
     Active Substance: EPIRUBICIN
     Indication: NEOPLASM MALIGNANT
     Dosage: 150 MG, 1X/DAY
     Route: 041
     Dates: start: 20200228, end: 20200228
  2. ENDOXAN [CYCLOPHOSPHAMIDE] [Suspect]
     Active Substance: CYCLOPHOSPHAMIDE
     Indication: NEOPLASM MALIGNANT
     Dosage: 1 G, 1X/DAY
     Route: 041
     Dates: start: 20200228, end: 20200228

REACTIONS (1)
  - Agranulocytosis [Recovering/Resolving]

NARRATIVE: CASE EVENT DATE: 20200228
